FAERS Safety Report 5000102-5 (Version None)
Quarter: 2006Q2

REPORT INFORMATION
  Report Type: 
  Country: None (occurrence: None)
  Receive Date: 20060501
  Receipt Date: 20060419
  Transmission Date: 20061013
  Serious: Yes (Hospitalization)
  Sender: FDA-Public Use
  Company Number: 2006052660

PATIENT
  Age: 43 Year
  Sex: Female

DRUGS (3)
  1. CLINDAMYCIN HCL [Suspect]
     Indication: INFLUENZA
     Dosage: 600 MG, (300 MG, 2 IN 1 D), ORAL
     Route: 048
     Dates: start: 20060301, end: 20060302
  2. FLAGYL [Suspect]
     Indication: INFLUENZA
     Dosage: 1500 MG (500 MG, 3 IN 1 D),ORAL
     Route: 048
     Dates: start: 20060301, end: 20060302
  3. ACETAMINOPHEN [Suspect]
     Indication: INFLUENZA
     Dosage: 3 GRAM  (1 GRAM, 3 IN 1 D), ORAL
     Route: 048
     Dates: start: 20060301, end: 20060302

REACTIONS (10)
  - ABDOMINAL PAIN [None]
  - ALCOHOL USE [None]
  - CYTOLYTIC HEPATITIS [None]
  - DRUG INTOLERANCE [None]
  - EAR PAIN [None]
  - HEPATIC TRAUMA [None]
  - INFLUENZA [None]
  - PALPITATIONS [None]
  - SELF-MEDICATION [None]
  - VOMITING [None]
